FAERS Safety Report 26194555 (Version 1)
Quarter: 2025Q4

REPORT INFORMATION
  Report Type: Spontaneous
  Country: US (occurrence: US)
  Receive Date: 20251224
  Receipt Date: 20251224
  Transmission Date: 20260118
  Serious: No
  Sender: CSL BEHRING
  Company Number: US-BEH-2025230103

PATIENT
  Age: 37 Year
  Sex: Female

DRUGS (1)
  1. MIRCERA [Suspect]
     Active Substance: METHOXY POLYETHYLENE GLYCOL-EPOETIN BETA
     Dosage: 30 ?G
     Route: 065

REACTIONS (6)
  - Drug hypersensitivity [Recovered/Resolved]
  - Abdominal pain [Recovered/Resolved]
  - Feeling hot [Recovered/Resolved]
  - Flushing [Recovered/Resolved]
  - Swelling [Recovered/Resolved]
  - Erythema [Recovered/Resolved]
